FAERS Safety Report 8142198-8 (Version None)
Quarter: 2012Q1

REPORT INFORMATION
  Report Type: 
  Country: None (occurrence: None)
  Receive Date: 20120216
  Receipt Date: 20101127
  Transmission Date: 20120608
  Serious: Yes (Death)
  Sender: FDA-Public Use
  Company Number: CA-ROCHE-1033254

PATIENT

DRUGS (4)
  1. PREDNISONE [Suspect]
     Indication: B-CELL LYMPHOMA
  2. MABTHERA [Suspect]
     Indication: B-CELL LYMPHOMA
     Route: 042
  3. VINCRISTINE [Suspect]
     Indication: B-CELL LYMPHOMA
  4. CYCLOPHOSPHAMIDE [Suspect]
     Indication: B-CELL LYMPHOMA

REACTIONS (1)
  - TOXICITY TO VARIOUS AGENTS [None]
